FAERS Safety Report 14761735 (Version 2)
Quarter: 2018Q2

REPORT INFORMATION
  Report Type: Spontaneous
  Country: JP (occurrence: JP)
  Receive Date: 20180416
  Receipt Date: 20180529
  Transmission Date: 20180711
  Serious: No
  Sender: FDA-Public Use
  Company Number: JP-BIOVERATIV-2018BV000167

PATIENT
  Age: 8 Decade
  Sex: Male
  Weight: 45 kg

DRUGS (2)
  1. ELOCTATE [Suspect]
     Active Substance: (1-743)-(1638-2332)-BLOOD-COAGULATION FACTOR VIII (SYNTHETIC HUMAN) FUSION PROTEIN WITH IMMUNOGLOBULIN G1 (SYNTHETIC HUMAN FC DOMAIN FRAGMENT), (1444-6^),(1447-9^)-BIS(DISULFIDE) WITH IMMUNOGLOBULIN G1 (SYNTHETIC HUMAN FC DOMAIN FRAGMENT)
     Indication: FACTOR VIII DEFICIENCY
     Dosage: ADDITIONAL TREATMENT
     Route: 042
  2. TRANSAMIN [Concomitant]
     Active Substance: TRANEXAMIC ACID
     Dosage: DOSE UNKNOWN
     Route: 065

REACTIONS (1)
  - Dental caries [Recovered/Resolved]
